FAERS Safety Report 9025853 (Version 2)
Quarter: 2013Q1

REPORT INFORMATION
  Report Type: Spontaneous
  Country: US (occurrence: None)
  Receive Date: 20130104
  Receipt Date: 20130212
  Transmission Date: 20140127
  Serious: Yes (Hospitalization)
  Sender: FDA-Public Use
  Company Number: 2012-004537

PATIENT
  Age: 80 Year
  Sex: Male

DRUGS (15)
  1. ASACOL HD [Suspect]
     Indication: COLITIS ULCERATIVE
     Dosage: (THREE 800 MG TABLETS (2400 MG) TWICE DAILY
     Route: 048
     Dates: start: 20120216
  2. ROWASA (MESALAZINE) [Concomitant]
  3. CANASA (MESALAZINE) [Concomitant]
  4. LAC-HYDRIN (AMMONIUM LACTATE) [Concomitant]
  5. VITAMIN D3 (COLECALCIFEROL) [Concomitant]
  6. PROCTOFOAM HC (HYDROCORTISONE ACETATE, PRAMOCAINE HYDROCHLORIDE) [Concomitant]
  7. BISACODYL (BISACODYL) [Concomitant]
  8. COLACE (DOCUSATE SODIUM) [Concomitant]
  9. MSM (METHYLSULFONYLMETHANE) [Concomitant]
  10. GLUCOSAMINE + CHONDROITIN /01625901/ (CHONDROITIN SULFATE, GLUCOSAMINE) [Concomitant]
  11. ENEMA /01318702/ (PHOSPHORIC ACID SODIUM) [Concomitant]
  12. POLYETHYLENE GLYCOL (MACROGOL) [Concomitant]
  13. MERCAPTOPURINE (MERCAPTOPURINE) [Concomitant]
  14. PROCTOFOAM /00622802/ (PRAMOCAINE HYDROCHLORIDE) [Concomitant]
  15. MULTIPLE VITAMINS (ASCORBIC ACID, ERGOCALCIFEROL, FOLIC ACID, RETINOL, TOCOPHEROL, VITAMIN B NOS) [Concomitant]

REACTIONS (21)
  - Dehydration [None]
  - Oedema [None]
  - Skin ulcer [None]
  - Diarrhoea [None]
  - Constipation [None]
  - Blister [None]
  - Drug ineffective [None]
  - Defaecation urgency [None]
  - Abdominal pain [None]
  - Faecal incontinence [None]
  - Abdominal distension [None]
  - Anaemia [None]
  - Eructation [None]
  - Flatulence [None]
  - Decreased appetite [None]
  - Fatigue [None]
  - Chills [None]
  - Pyrexia [None]
  - Feeling of body temperature change [None]
  - Haematochezia [None]
  - Cellulitis [None]
